FAERS Safety Report 18104595 (Version 2)
Quarter: 2020Q3

REPORT INFORMATION
  Report Type: Spontaneous
  Country: PL (occurrence: PL)
  Receive Date: 20200803
  Receipt Date: 20200805
  Transmission Date: 20201103
  Serious: No
  Sender: FDA-Public Use
  Company Number: PL-JNJFOC-20200743754

PATIENT
  Sex: Male

DRUGS (1)
  1. XARELTO [Suspect]
     Active Substance: RIVAROXABAN
     Indication: ATRIAL FIBRILLATION
     Dosage: 20 MG
     Route: 048
     Dates: start: 2018

REACTIONS (3)
  - Peripheral swelling [Recovering/Resolving]
  - Hypersensitivity [Recovering/Resolving]
  - Purpura [Recovering/Resolving]
